FAERS Safety Report 13227588 (Version 1)
Quarter: 2017Q1

REPORT INFORMATION
  Report Type: Report from Study
  Country: US (occurrence: US)
  Receive Date: 20170213
  Receipt Date: 20170213
  Transmission Date: 20170428
  Serious: Yes (Hospitalization)
  Sender: FDA-Public Use
  Company Number: US-PFIZER INC-2017061985

PATIENT
  Age: 57 Year
  Sex: Male
  Weight: 105.8 kg

DRUGS (12)
  1. DAUNORUBICIN [Concomitant]
     Active Substance: DAUNORUBICIN
  2. TYLENOL [Concomitant]
     Active Substance: ACETAMINOPHEN
  3. K-DUR [Concomitant]
     Active Substance: POTASSIUM CHLORIDE
  4. DILANTIN [Suspect]
     Active Substance: PHENYTOIN
     Indication: STEM CELL TRANSPLANT
  5. FLUCONAZOLE. [Concomitant]
     Active Substance: FLUCONAZOLE
  6. LEVAQUIN [Concomitant]
     Active Substance: LEVOFLOXACIN
  7. BENADRYL [Concomitant]
     Active Substance: DIPHENHYDRAMINE HYDROCHLORIDE
  8. COMPAZINE /00013302/ [Concomitant]
     Active Substance: PROCHLORPERAZINE EDISYLATE
  9. BLINDED THERAPY [Suspect]
     Active Substance: INVESTIGATIONAL PRODUCT
     Indication: ACUTE MYELOID LEUKAEMIA
     Dosage: 50 MG, BID
     Route: 048
     Dates: start: 20100903, end: 20101210
  10. CYTARABINE. [Concomitant]
     Active Substance: CYTARABINE
  11. ZOFRAN [Concomitant]
     Active Substance: ONDANSETRON HYDROCHLORIDE
  12. ACYCLOVIR /00587301/ [Concomitant]
     Active Substance: ACYCLOVIR

REACTIONS (1)
  - Encephalopathy [Recovered/Resolved]

NARRATIVE: CASE EVENT DATE: 20101228
